APPROVED DRUG PRODUCT: BUPROPION HYDROCHLORIDE
Active Ingredient: BUPROPION HYDROCHLORIDE
Strength: 150MG
Dosage Form/Route: TABLET, EXTENDED RELEASE;ORAL
Application: A090942 | Product #001
Applicant: AUROBINDO PHARMA USA INC
Approved: Jul 14, 2010 | RLD: No | RS: No | Type: DISCN